FAERS Safety Report 22006043 (Version 1)
Quarter: 2023Q1

REPORT INFORMATION
  Report Type: Spontaneous
  Country: US (occurrence: None)
  Receive Date: 20230216
  Receipt Date: 20230216
  Transmission Date: 20230418
  Serious: Yes (Hospitalization)
  Sender: FDA-Public Use
  Company Number: None

PATIENT
  Sex: Male

DRUGS (2)
  1. AMBRISENTAN [Suspect]
     Active Substance: AMBRISENTAN
     Indication: Pulmonary arterial hypertension
     Dosage: FREQUENCY : DAILY;?
     Route: 048
     Dates: start: 201909
  2. AMBRISENTAN [Concomitant]

REACTIONS (5)
  - Diarrhoea [None]
  - Haemoptysis [None]
  - Anxiety [None]
  - Palpitations [None]
  - Bronchial artery embolisation [None]
